FAERS Safety Report 5753693-0 (Version None)
Quarter: 2008Q2

REPORT INFORMATION
  Report Type: 
  Country: None (occurrence: None)
  Receive Date: 20080530
  Receipt Date: 20080528
  Transmission Date: 20081010
  Serious: Yes (Other)
  Sender: FDA-Public Use
  Company Number: DE-ASTRAZENECA-2008AC01365

PATIENT
  Age: 22 Year
  Sex: Female

DRUGS (5)
  1. BUPIVACAINE [Suspect]
     Indication: SPINAL ANAESTHESIA
     Route: 037
  2. OXYTOCIN [Suspect]
     Route: 042
  3. EPHEDRINE SUL CAP [Suspect]
     Indication: HAEMODYNAMIC INSTABILITY
  4. EPHEDRINE SUL CAP [Suspect]
  5. CRYSTALLOIDS [Concomitant]
     Indication: HAEMODYNAMIC INSTABILITY

REACTIONS (2)
  - HYPOTENSION [None]
  - MYOCARDIAL INFARCTION [None]
